FAERS Safety Report 6771674-5 (Version None)
Quarter: 2010Q2

REPORT INFORMATION
  Report Type: 
  Country: None (occurrence: None)
  Receive Date: 20100616
  Receipt Date: 20100609
  Transmission Date: 20101027
  Serious: Yes (Other)
  Sender: FDA-Public Use
  Company Number: DE-ASTRAZENECA-2010SE25265

PATIENT
  Age: 14 Year
  Sex: Male
  Weight: 43 kg

DRUGS (3)
  1. SEROQUEL XR [Suspect]
     Indication: IMPULSIVE BEHAVIOUR
     Dosage: LOWER DOSE THAN 300 MG
     Route: 048
     Dates: start: 20100421
  2. SEROQUEL XR [Suspect]
     Route: 048
     Dates: start: 20100501
  3. TRUXAL [Concomitant]
     Indication: TENSION
     Route: 048
     Dates: start: 20100426

REACTIONS (1)
  - NEUTROPENIA [None]
